FAERS Safety Report 21897995 (Version 1)
Quarter: 2023Q1

REPORT INFORMATION
  Report Type: Report from Study
  Country: ES (occurrence: ES)
  Receive Date: 20230123
  Receipt Date: 20230123
  Transmission Date: 20230417
  Serious: Yes (Hospitalization)
  Sender: FDA-Public Use
  Company Number: ES-GLAXOSMITHKLINE-ES2023GSK009165

PATIENT

DRUGS (1)
  1. DOSTARLIMAB [Suspect]
     Active Substance: DOSTARLIMAB
     Indication: Endometrial neoplasm
     Route: 042

REACTIONS (4)
  - Abdominal pain [Unknown]
  - Nausea [Unknown]
  - Vaginal haemorrhage [Unknown]
  - Disease progression [Unknown]

NARRATIVE: CASE EVENT DATE: 20220112
